FAERS Safety Report 18161219 (Version 1)
Quarter: 2020Q3

REPORT INFORMATION
  Report Type: Spontaneous
  Country: ES (occurrence: ES)
  Receive Date: 20200817
  Receipt Date: 20200817
  Transmission Date: 20201103
  Serious: Yes (Hospitalization, Other)
  Sender: FDA-Public Use
  Company Number: ES-ELI_LILLY_AND_COMPANY-ES202008002974

PATIENT
  Age: 56 Year
  Sex: Female

DRUGS (3)
  1. DULOXETINE HYDROCHLORIDE. [Suspect]
     Active Substance: DULOXETINE HYDROCHLORIDE
     Indication: SUICIDE ATTEMPT
     Dosage: 1080 MG, UNKNOWN
     Route: 048
     Dates: start: 20200331, end: 20200331
  2. LORAZEPAM. [Interacting]
     Active Substance: LORAZEPAM
     Indication: SUICIDE ATTEMPT
     Dosage: 10 MG, UNKNOWN
     Route: 048
     Dates: start: 20200331, end: 20200331
  3. RIVOTRIL [Interacting]
     Active Substance: CLONAZEPAM
     Indication: SUICIDE ATTEMPT
     Dosage: 3.5 MG, UNKNOWN
     Route: 048
     Dates: start: 20200331, end: 20200331

REACTIONS (5)
  - Depressed level of consciousness [Recovered/Resolved]
  - Rhabdomyolysis [Recovered/Resolved]
  - Acute kidney injury [Recovered/Resolved]
  - Pneumonia aspiration [Recovered/Resolved]
  - Overdose [Unknown]

NARRATIVE: CASE EVENT DATE: 20200331
